FAERS Safety Report 7357064-5 (Version None)
Quarter: 2011Q1

REPORT INFORMATION
  Report Type: 
  Country: None (occurrence: None)
  Receive Date: 20110310
  Receipt Date: 20110310
  Transmission Date: 20110831
  Serious: Yes (Hospitalization)
  Sender: FDA-Public Use
  Company Number: None

PATIENT
  Age: 79 Year
  Sex: Male
  Weight: 66.68 kg

DRUGS (1)
  1. LITHIUM CARBONATE [Suspect]
     Indication: BIPOLAR I DISORDER
     Dosage: 900 MG HS PO
     Route: 048
     Dates: start: 20030908

REACTIONS (3)
  - AGITATION [None]
  - CONFUSIONAL STATE [None]
  - ABNORMAL BEHAVIOUR [None]
